FAERS Safety Report 15665177 (Version 2)
Quarter: 2018Q4

REPORT INFORMATION
  Report Type: Spontaneous
  Country: BE (occurrence: BE)
  Receive Date: 20181128
  Receipt Date: 20181130
  Transmission Date: 20190205
  Serious: Yes (Death, Other)
  Sender: FDA-Public Use
  Company Number: BE-PFIZER INC-2018026096

PATIENT
  Age: 80 Year
  Sex: Male

DRUGS (1)
  1. LINEZOLID. [Suspect]
     Active Substance: LINEZOLID
     Indication: PNEUMONIA STAPHYLOCOCCAL
     Dosage: 1.2 G, 2X/DAY (EVERY 12 H)

REACTIONS (3)
  - Anuria [Unknown]
  - Drug ineffective [Fatal]
  - Blood creatinine increased [Unknown]
